FAERS Safety Report 24729969 (Version 1)
Quarter: 2024Q4

REPORT INFORMATION
  Report Type: Spontaneous
  Country: US (occurrence: US)
  Receive Date: 20241213
  Receipt Date: 20241213
  Transmission Date: 20250115
  Serious: No
  Sender: AMNEAL
  Company Number: US-AMNEAL PHARMACEUTICALS-2024-AMRX-01242

PATIENT
  Age: 66 Year
  Sex: Female
  Weight: 46.712 kg

DRUGS (6)
  1. CLOMIPRAMINE HYDROCHLORIDE [Suspect]
     Active Substance: CLOMIPRAMINE HYDROCHLORIDE
     Indication: Depression
     Dosage: (25 MG) 1 CAPSULES, QD
     Route: 065
     Dates: start: 20240318
  2. AMBIEN [Concomitant]
     Active Substance: ZOLPIDEM TARTRATE
     Indication: Product used for unknown indication
     Dosage: (10 MG) 1 CAPSULES, QD
     Route: 048
     Dates: start: 20240318
  3. DILTIAZEM [Concomitant]
     Active Substance: DILTIAZEM
     Indication: Product used for unknown indication
     Dosage: (110 MG) 1 CAPSULES, QD
     Route: 048
     Dates: start: 2018
  4. GEMFIBROZIL [Concomitant]
     Active Substance: GEMFIBROZIL
     Indication: Product used for unknown indication
     Dosage: (600 MG) 1 CAPSULES, BID
     Route: 048
     Dates: start: 2020
  5. DEXILANT [Concomitant]
     Active Substance: DEXLANSOPRAZOLE
     Indication: Product used for unknown indication
     Dosage: (60 MG) 1 CAPSULES, QD
     Route: 048
     Dates: start: 2017
  6. SYNTHROID [Concomitant]
     Active Substance: LEVOTHYROXINE SODIUM
     Indication: Product used for unknown indication
     Dosage: (37.5 MG) 1 CAPSULES, QD
     Route: 048
     Dates: start: 2012

REACTIONS (4)
  - Influenza like illness [Not Recovered/Not Resolved]
  - Vomiting [Not Recovered/Not Resolved]
  - Asthenia [Not Recovered/Not Resolved]
  - Nausea [Not Recovered/Not Resolved]

NARRATIVE: CASE EVENT DATE: 20240322
